FAERS Safety Report 9562755 (Version 1)
Quarter: 2013Q3

REPORT INFORMATION
  Report Type: Spontaneous
  Country: CN (occurrence: CN)
  Receive Date: 20130927
  Receipt Date: 20130927
  Transmission Date: 20140515
  Serious: Yes (Other)
  Sender: FDA-Public Use
  Company Number: CN-ACTAVIS-2013-16724

PATIENT
  Age: 2 Year
  Sex: Male
  Weight: 13 kg

DRUGS (3)
  1. TRAMADOL (UNKNOWN) [Suspect]
     Indication: POSTOPERATIVE ANALGESIA
     Dosage: 0.75 MG/KG.H, CONTINUOUS
     Route: 042
  2. GRANISETRON (UNKNOWN) [Interacting]
     Indication: POSTOPERATIVE ANALGESIA
     Dosage: 0.125 MG/H, CONTINUOUS
     Route: 042
  3. SUFENTANIL [Concomitant]
     Indication: PRODUCT USED FOR UNKNOWN INDICATION
     Dosage: 2 MCG, SINGLE
     Route: 065

REACTIONS (3)
  - Convulsion [Recovering/Resolving]
  - Overdose [Unknown]
  - Drug interaction [Unknown]
